FAERS Safety Report 16417450 (Version 1)
Quarter: 2019Q2

REPORT INFORMATION
  Report Type: Spontaneous
  Country: SE (occurrence: SE)
  Receive Date: 20190611
  Receipt Date: 20190611
  Transmission Date: 20190711
  Serious: Yes (Death)
  Sender: FDA-Public Use
  Company Number: SE-MYLANLABS-2019M1054528

PATIENT
  Age: 80 Year
  Sex: Male

DRUGS (12)
  1. BEHEPAN                            /00056201/ [Concomitant]
     Active Substance: CYANOCOBALAMIN
  2. ENALAPRIL [Concomitant]
     Active Substance: ENALAPRIL
  3. SYMBICORT [Concomitant]
     Active Substance: BUDESONIDE\FORMOTEROL FUMARATE DIHYDRATE
  4. LOGIMAX [Concomitant]
     Active Substance: FELODIPINE\METOPROLOL SUCCINATE
  5. BICALUTAMIDE. [Concomitant]
     Active Substance: BICALUTAMIDE
     Dosage: UNK
  6. METFORMIN [Concomitant]
     Active Substance: METFORMIN HYDROCHLORIDE
  7. VALACICLOVIR [Suspect]
     Active Substance: VALACYCLOVIR HYDROCHLORIDE
     Indication: HERPES ZOSTER
     Dosage: 3000 MILLIGRAM, QD (500 MG 2X3)
     Route: 048
     Dates: start: 2018, end: 2018
  8. AMILORIDE [Concomitant]
     Active Substance: AMILORIDE
  9. ALLOPURINOL. [Concomitant]
     Active Substance: ALLOPURINOL
     Dosage: UNK
  10. SIMVASTATIN. [Concomitant]
     Active Substance: SIMVASTATIN
  11. MIRTAZAPINE. [Concomitant]
     Active Substance: MIRTAZAPINE
  12. MADOPARK [Concomitant]
     Active Substance: BENSERAZIDE HYDROCHLORIDE\LEVODOPA

REACTIONS (4)
  - Renal failure [Fatal]
  - Myoclonus [Fatal]
  - Coma [Fatal]
  - Encephalopathy [Fatal]

NARRATIVE: CASE EVENT DATE: 2018
